FAERS Safety Report 10203320 (Version 2)
Quarter: 2014Q2

REPORT INFORMATION
  Report Type: Spontaneous
  Country: FI (occurrence: FI)
  Receive Date: 20140529
  Receipt Date: 20140530
  Transmission Date: 20141212
  Serious: Yes (Death)
  Sender: FDA-Public Use
  Company Number: PHHY2014FI064353

PATIENT
  Age: 72 Year
  Sex: Male

DRUGS (1)
  1. AFINITOR [Suspect]
     Indication: RENAL CELL CARCINOMA
     Dates: start: 201309

REACTIONS (6)
  - Malignant neoplasm progression [Fatal]
  - General physical health deterioration [Unknown]
  - Hyponatraemia [Unknown]
  - Stomatitis [Unknown]
  - Anaemia [Unknown]
  - Pneumonitis [Unknown]
